FAERS Safety Report 5242357-8 (Version None)
Quarter: 2007Q1

REPORT INFORMATION
  Report Type: 
  Country: None (occurrence: None)
  Receive Date: 20070221
  Receipt Date: 20070215
  Transmission Date: 20070707
  Serious: Yes (Hospitalization)
  Sender: FDA-Public Use
  Company Number: 2007UW03071

PATIENT
  Age: 27909 Day
  Sex: Male

DRUGS (14)
  1. IRESSA [Suspect]
     Indication: PROSTATE CANCER
     Route: 048
     Dates: start: 20061227
  2. ETOPOSIDE [Suspect]
     Indication: PROSTATE CANCER
     Dosage: DAILY 14 OF 28 DAYS
     Route: 048
     Dates: start: 20061227, end: 20070206
  3. ASPIRIN [Concomitant]
  4. REMERON [Concomitant]
  5. WELLBUTRIN [Concomitant]
  6. XANAX [Concomitant]
     Dosage: TWICE DAILY
  7. COMPAZINE [Concomitant]
  8. ZOCOR [Concomitant]
  9. TEMAZEPAM [Concomitant]
     Dosage: 30 OR 45 MG NIGHTLY
  10. QUINAPRIL [Concomitant]
  11. TERAZOSIN HCL [Concomitant]
  12. METOPROLOL SUCCINATE [Concomitant]
  13. NITROGLYCERIN [Concomitant]
  14. OXYCODONE HCL [Concomitant]

REACTIONS (1)
  - RENAL FAILURE ACUTE [None]
